FAERS Safety Report 9779902 (Version 1)
Quarter: 2013Q4

REPORT INFORMATION
  Report Type: Spontaneous
  Country: FR (occurrence: FR)
  Receive Date: 20131223
  Receipt Date: 20131223
  Transmission Date: 20140711
  Serious: Yes (Hospitalization)
  Sender: FDA-Public Use
  Company Number: PHHY2013FR148717

PATIENT
  Age: 39 Year
  Sex: Male
  Weight: 61.6 kg

DRUGS (1)
  1. DOXYCYCLINE SANDOZ [Suspect]
     Indication: ACNE
     Dosage: 100 MG, QD
     Route: 048
     Dates: start: 20120518, end: 20120523

REACTIONS (1)
  - Pancreatitis acute [Recovered/Resolved]
